FAERS Safety Report 25298897 (Version 1)
Quarter: 2025Q2

REPORT INFORMATION
  Report Type: Report from Study
  Country: TW (occurrence: TW)
  Receive Date: 20250512
  Receipt Date: 20250512
  Transmission Date: 20250716
  Serious: Yes (Death, Other)
  Sender: ROCHE
  Company Number: TW-ROCHE-10000278531

PATIENT

DRUGS (4)
  1. RITUXIMAB [Suspect]
     Active Substance: RITUXIMAB
     Indication: Diffuse large B-cell lymphoma
     Route: 065
  2. CYCLOPHOSPHAMIDE [Suspect]
     Active Substance: CYCLOPHOSPHAMIDE
     Indication: Diffuse large B-cell lymphoma
     Route: 065
  3. VINCRISTINE [Suspect]
     Active Substance: VINCRISTINE
     Indication: Diffuse large B-cell lymphoma
     Route: 065
  4. PREDNISONE [Suspect]
     Active Substance: PREDNISONE
     Indication: Diffuse large B-cell lymphoma
     Route: 065

REACTIONS (11)
  - Infection [Fatal]
  - Gastrointestinal haemorrhage [Fatal]
  - Arrhythmia [Fatal]
  - Febrile neutropenia [Unknown]
  - Gastrointestinal perforation [Unknown]
  - Cardiac failure congestive [Unknown]
  - Chronic hepatitis B [Unknown]
  - Dumping syndrome [Unknown]
  - Extravasation [Unknown]
  - Jaundice cholestatic [Unknown]
  - Hepatic rupture [Unknown]
